FAERS Safety Report 9342632 (Version 1)
Quarter: 2013Q2

REPORT INFORMATION
  Report Type: Spontaneous
  Country: US (occurrence: None)
  Receive Date: 20130607
  Receipt Date: 20130607
  Transmission Date: 20140414
  Serious: Yes (Death)
  Sender: FDA-Public Use
  Company Number: 1737587

PATIENT
  Age: 68 Year
  Sex: Male

DRUGS (11)
  1. VANCOMYCIN HYDROCHLORIDE [Suspect]
     Indication: LOBAR PNEUMONIA
     Dates: start: 20130310
  2. (VORICONAZOLE) [Suspect]
     Indication: LOBAR PNEUMONIA
     Dates: start: 20130310
  3. (ACYCLOVIR) [Suspect]
     Indication: PRODUCT USED FOR UNKNOWN INDICATION
     Route: 048
  4. (COLACE) [Concomitant]
  5. (NEXIUM) [Concomitant]
  6. (FOLIC ACID) [Concomitant]
  7. (LYRICA) [Concomitant]
  8. (DILAUDID) [Concomitant]
  9. (ZOFRAN/00955301/) [Concomitant]
  10. (SPRYCEL) [Concomitant]
  11. (LOVENOX) [Concomitant]

REACTIONS (11)
  - Cardio-respiratory arrest [None]
  - Renal failure acute [None]
  - Anaemia [None]
  - Thrombocytopenia [None]
  - Respiratory disorder [None]
  - Acute lymphocytic leukaemia [None]
  - Disease complication [None]
  - Skin lesion [None]
  - Infection [None]
  - Blood pressure systolic increased [None]
  - Lobar pneumonia [None]
